FAERS Safety Report 9727096 (Version 1)
Quarter: 2013Q4

REPORT INFORMATION
  Report Type: Spontaneous
  Country: US (occurrence: US)
  Receive Date: 20131203
  Receipt Date: 20131203
  Transmission Date: 20140711
  Serious: Yes (Other)
  Sender: FDA-Public Use
  Company Number: US-BAYER-2013-143909

PATIENT
  Age: 26 Year
  Sex: Female
  Weight: 64.4 kg

DRUGS (10)
  1. YAZ [Suspect]
  2. BEYAZ [Suspect]
  3. GIANVI [Suspect]
  4. ABILIFY [Concomitant]
  5. ZOLOFT [Concomitant]
  6. WELLBUTRIN [Concomitant]
  7. ALLEGRA-D [Concomitant]
  8. ZYRTEC [Concomitant]
  9. AMOXICILLIN [Concomitant]
  10. VICODIN [Concomitant]

REACTIONS (1)
  - Biliary dyskinesia [None]
